FAERS Safety Report 5836362-8 (Version None)
Quarter: 2008Q3

REPORT INFORMATION
  Report Type: 
  Country: None (occurrence: None)
  Receive Date: 20080801
  Receipt Date: 20080515
  Transmission Date: 20090109
  Serious: Yes (Hospitalization)
  Sender: FDA-Public Use
  Company Number: PHEH2008US04633

PATIENT
  Age: 91 Year
  Sex: Male
  Weight: 80.3 kg

DRUGS (7)
  1. EXELON [Suspect]
     Indication: PARKINSON'S DISEASE
     Dosage: 4.6 MG, QD, TRANSDERMAL
     Route: 062
     Dates: start: 20080507, end: 20080513
  2. LISINOPRIL [Concomitant]
  3. PLAVIX [Concomitant]
  4. LIPITOR /NET/ (ATORVASTATIN CALCIUM) [Concomitant]
  5. LEVOTHYROXINE SODIUM [Concomitant]
  6. SINEMET [Concomitant]
  7. INSULIN (INSULIN) [Concomitant]

REACTIONS (2)
  - BRADYCARDIA [None]
  - PRESYNCOPE [None]
